FAERS Safety Report 9199216 (Version 1)
Quarter: 2013Q1

REPORT INFORMATION
  Report Type: Spontaneous
  Country: GB (occurrence: None)
  Receive Date: 20130326
  Receipt Date: 20130326
  Transmission Date: 20140127
  Serious: Yes (Other)
  Sender: FDA-Public Use
  Company Number: AUR-APL-2013-02422

PATIENT
  Age: 62 Year
  Sex: Female

DRUGS (2)
  1. AMLODIPINE (AMLODIPINE) [Suspect]
     Indication: HYPERTENSION
     Dosage: 1 IN 1 D
     Dates: start: 20130122, end: 20130218
  2. OLMETEC (OLMESARTAN MEDOXOMIL) [Concomitant]

REACTIONS (7)
  - Dyspnoea [None]
  - Dyspepsia [None]
  - Hot flush [None]
  - Depression [None]
  - Anxiety [None]
  - Listless [None]
  - Joint swelling [None]
